FAERS Safety Report 10289370 (Version 2)
Quarter: 2014Q3

REPORT INFORMATION
  Report Type: Spontaneous
  Country: TR (occurrence: TR)
  Receive Date: 20140710
  Receipt Date: 20140721
  Transmission Date: 20150326
  Serious: Yes (Hospitalization)
  Sender: FDA-Public Use
  Company Number: TR-AMGEN INC.-TURSP2014051861

PATIENT
  Sex: Male

DRUGS (1)
  1. ENBREL [Suspect]
     Active Substance: ETANERCEPT
     Indication: ANKYLOSING SPONDYLITIS
     Dosage: 25 MG, 2X/WEEK
     Route: 065

REACTIONS (2)
  - Weight decreased [Recovered/Resolved]
  - Pneumonitis [Recovered/Resolved]
